FAERS Safety Report 8377630-8 (Version None)
Quarter: 2012Q2

REPORT INFORMATION
  Report Type: 
  Country: None (occurrence: None)
  Receive Date: 20120522
  Receipt Date: 20120516
  Transmission Date: 20120825
  Serious: Yes (Hospitalization, Other)
  Sender: FDA-Public Use
  Company Number: US-BAYER-2012-014313

PATIENT
  Age: 22 Year
  Sex: Female
  Weight: 52.3 kg

DRUGS (14)
  1. YASMIN [Suspect]
     Indication: ENDOMETRIOSIS
     Dosage: UNK
     Dates: start: 20020101, end: 20070101
  2. FLUCONAZOLE [Concomitant]
     Dosage: 100 MG, UNK
     Route: 048
     Dates: start: 20100310
  3. YAZ [Suspect]
     Indication: MENSTRUATION IRREGULAR
  4. ZYRTEC [Concomitant]
     Route: 048
  5. VITAMIN TAB [Concomitant]
     Dosage: 1 TABLET, QD
     Route: 048
  6. YASMIN [Suspect]
     Indication: MENSTRUATION IRREGULAR
  7. DROSPIRENONE AND ETHINYL ESTRADIOL [Suspect]
     Indication: ENDOMETRIOSIS
     Dosage: UNK
     Dates: start: 20100422, end: 20100513
  8. YAZ [Suspect]
     Indication: ENDOMETRIOSIS
     Dosage: UNK
     Dates: start: 20070101, end: 20100421
  9. DROSPIRENONE AND ETHINYL ESTRADIOL [Suspect]
     Indication: MENSTRUATION IRREGULAR
  10. STOOL SOFTENER [Concomitant]
  11. ASCORBIC ACID [Concomitant]
     Route: 048
  12. VICODIN [Concomitant]
     Dosage: 5 MG, UNK
  13. NITROFURANT MACRO [Concomitant]
     Dosage: UNK
     Route: 048
     Dates: start: 20100130
  14. ZOFRAN [Concomitant]

REACTIONS (7)
  - ABDOMINAL PAIN [None]
  - CHOLELITHIASIS [None]
  - NAUSEA [None]
  - EMOTIONAL DISTRESS [None]
  - CHOLECYSTITIS CHRONIC [None]
  - INJURY [None]
  - VOMITING [None]
